FAERS Safety Report 8428493-3 (Version None)
Quarter: 2012Q2

REPORT INFORMATION
  Report Type: 
  Country: None (occurrence: None)
  Receive Date: 20120612
  Receipt Date: 20120605
  Transmission Date: 20120825
  Serious: No
  Sender: FDA-Public Use
  Company Number: US-PFIZER INC-2012119326

PATIENT
  Sex: Male
  Weight: 18 kg

DRUGS (5)
  1. MULTI-VITAMINS [Concomitant]
     Dosage: UNK
  2. PERIACTIN [Concomitant]
     Dosage: UNK
  3. FLONASE [Concomitant]
     Dosage: UNK
  4. ONDANSETRON [Concomitant]
     Dosage: 4 MG, UNK
  5. GENOTROPIN [Suspect]
     Indication: SMALL FOR DATES BABY
     Dosage: 1 MG, 1XDAY, (7 INJECTIONS/WEEK)
     Route: 058
     Dates: start: 20120502

REACTIONS (3)
  - NAUSEA [None]
  - GASTROENTERITIS VIRAL [None]
  - VOMITING [None]
